FAERS Safety Report 9018575 (Version 2)
Quarter: 2013Q1

REPORT INFORMATION
  Report Type: Spontaneous
  Country: US (occurrence: US)
  Receive Date: 20130118
  Receipt Date: 20130227
  Transmission Date: 20140127
  Serious: Yes (Other)
  Sender: FDA-Public Use
  Company Number: US-PFIZER INC-2013015833

PATIENT
  Age: 27 Year
  Sex: Female
  Weight: 56.7 kg

DRUGS (7)
  1. ZOLOFT [Suspect]
     Indication: ANXIETY
     Dosage: 50 MG, DAILY
     Dates: start: 2008, end: 2009
  2. ZOLOFT [Suspect]
     Dosage: 50 MG, DAILY
     Dates: start: 2012, end: 2012
  3. ZOLOFT [Suspect]
     Dosage: 50 MG, DAILY
     Dates: start: 2012, end: 2012
  4. KLONOPIN [Suspect]
     Indication: ANXIETY
     Dosage: 0.5 MG, UNK
  5. VALIUM [Suspect]
     Indication: ANXIETY
     Dosage: UNK
  6. SYNTHROID [Concomitant]
     Indication: HYPERTHYROIDISM
     Dosage: 50 UG, DAILY
  7. ASACOL [Concomitant]
     Indication: CROHN^S DISEASE
     Dosage: THREE TABLETS THREE OR FOUR TIMES A DAY

REACTIONS (6)
  - Coeliac disease [Unknown]
  - Abdominal discomfort [Unknown]
  - Malaise [Unknown]
  - Fatigue [Unknown]
  - Drug intolerance [Unknown]
  - Drug ineffective [Unknown]
